FAERS Safety Report 15454490 (Version 3)
Quarter: 2018Q4

REPORT INFORMATION
  Report Type: Spontaneous
  Country: US (occurrence: US)
  Receive Date: 20181002
  Receipt Date: 20181023
  Transmission Date: 20190204
  Serious: No
  Sender: FDA-Public Use
  Company Number: US-PFIZER INC-2018052711

PATIENT
  Age: 69 Year
  Sex: Female

DRUGS (1)
  1. GENOTROPIN MQ [Suspect]
     Active Substance: SOMATROPIN
     Dosage: 0.6 MG, DAILY
     Dates: start: 20031209

REACTIONS (5)
  - Weight decreased [Unknown]
  - Energy increased [Unknown]
  - Pre-existing condition improved [Unknown]
  - Blood glucose increased [Unknown]
  - Therapeutic response unexpected [Unknown]
